FAERS Safety Report 17712236 (Version 1)
Quarter: 2020Q2

REPORT INFORMATION
  Report Type: Spontaneous
  Country: MX (occurrence: MX)
  Receive Date: 20200427
  Receipt Date: 20200427
  Transmission Date: 20200714
  Serious: Yes (Other)
  Sender: FDA-Public Use
  Company Number: MX-ALVOGEN-2020-ALVOGEN-108230

PATIENT
  Age: 28242 Day
  Sex: Male
  Weight: 75 kg

DRUGS (3)
  1. ATENOLOL. [Suspect]
     Active Substance: ATENOLOL
     Indication: HYPERTENSION
     Dosage: 100 MG ORALLY (0.5 DOSAGE FORM) TWICE A DAY
     Route: 048
     Dates: start: 20200403
  2. AMLODIPINE BESILATE/HYDROCHLOROTHIAZIDE/VALSARTAN [Suspect]
     Active Substance: AMLODIPINE BESYLATE\HYDROCHLOROTHIAZIDE\VALSARTAN
     Indication: HYPERTENSION
     Route: 048
     Dates: start: 20200403, end: 20200409
  3. AMLODIPINE BESILATE/HYDROCHLOROTHIAZIDE/VALSARTAN [Suspect]
     Active Substance: AMLODIPINE BESYLATE\HYDROCHLOROTHIAZIDE\VALSARTAN
     Indication: HYPERTENSION
     Route: 048
     Dates: start: 2019, end: 20200402

REACTIONS (4)
  - Off label use [Not Recovered/Not Resolved]
  - Blood uric acid increased [Unknown]
  - Arrhythmia [Unknown]
  - Blood glucose increased [Unknown]

NARRATIVE: CASE EVENT DATE: 20200403
